FAERS Safety Report 6850184-0 (Version None)
Quarter: 2010Q3

REPORT INFORMATION
  Report Type: 
  Country: None (occurrence: None)
  Receive Date: 20100716
  Receipt Date: 20100707
  Transmission Date: 20110219
  Serious: Yes (Hospitalization)
  Sender: FDA-Public Use
  Company Number: DE-ABBOTT-10P-062-0637413-00

PATIENT
  Sex: Female
  Weight: 52 kg

DRUGS (4)
  1. HUMIRA [Suspect]
     Indication: RHEUMATOID ARTHRITIS
     Route: 058
     Dates: start: 20080513, end: 20100310
  2. METHOTREXAT [Concomitant]
     Indication: RHEUMATOID ARTHRITIS
     Dosage: 15 MG WEEKLY
     Route: 048
     Dates: start: 20010401
  3. FOLIC ACID [Concomitant]
     Indication: RHEUMATOID ARTHRITIS
     Dosage: 5 MG WEEKLY
     Route: 048
     Dates: start: 20010401
  4. INDOMETHACIN SODIUM [Concomitant]
     Indication: RHEUMATOID ARTHRITIS
     Dosage: 25MG TWICE DAILY AS NEEDED
     Dates: start: 20010401

REACTIONS (3)
  - BRONCHITIS BACTERIAL [None]
  - HAEMOPTYSIS [None]
  - RESPIRATORY TRACT INFECTION [None]
